FAERS Safety Report 4512426-6 (Version None)
Quarter: 2004Q4

REPORT INFORMATION
  Report Type: 
  Country: None (occurrence: None)
  Receive Date: 20041124
  Receipt Date: 20041108
  Transmission Date: 20050328
  Serious: Yes (Death)
  Sender: FDA-Public Use
  Company Number: USA041183558

PATIENT
  Age: 39 Year
  Sex: Male

DRUGS (1)
  1. INSULIN-INSULIN-ANIMAL (INSUL [Suspect]
     Indication: DIABETES MELLITUS

REACTIONS (2)
  - CARDIAC FAILURE CONGESTIVE [None]
  - IMPAIRED WORK ABILITY [None]
